FAERS Safety Report 5070111-9 (Version None)
Quarter: 2006Q3

REPORT INFORMATION
  Report Type: 
  Country: None (occurrence: None)
  Receive Date: 20060731
  Receipt Date: 20060717
  Transmission Date: 20061208
  Serious: Yes (Other)
  Sender: FDA-Public Use
  Company Number: 2006089962

PATIENT
  Age: 67 Year
  Sex: Female

DRUGS (9)
  1. AROMASIN [Suspect]
     Indication: BREAST CANCER
     Dosage: 1 TABLET (DAILY), ORAL
     Route: 048
     Dates: start: 20060501
  2. MEGLUCON                    (METFORMIN HYDROCHLORIDE) [Concomitant]
  3. INSULIN [Concomitant]
  4. BELOC-ZOC MITE                   (METOPROLOL SUCCINATE) [Concomitant]
  5. ENALAPRIL MALEATE [Concomitant]
  6. DIURETICS           (DIURETICS) [Concomitant]
  7. ACETYLSALICYLIC ACID SRT [Concomitant]
  8. ALLOPURINOL [Concomitant]
  9. SIMVASTATIN [Concomitant]

REACTIONS (4)
  - BLOOD GLUCOSE INCREASED [None]
  - EXERCISE LACK OF [None]
  - MOBILITY DECREASED [None]
  - WEIGHT DECREASED [None]
